FAERS Safety Report 7458825-4 (Version None)
Quarter: 2011Q2

REPORT INFORMATION
  Report Type: 
  Country: None (occurrence: None)
  Receive Date: 20110504
  Receipt Date: 20110420
  Transmission Date: 20111010
  Serious: Yes (Death, Other)
  Sender: FDA-Public Use
  Company Number: JP-ROCHE-768502

PATIENT
  Sex: Male
  Weight: 52 kg

DRUGS (2)
  1. XELODA [Suspect]
     Indication: LARGE INTESTINE CARCINOMA
     Route: 048
     Dates: start: 20110308, end: 20110320
  2. OXALIPLATIN [Suspect]
     Route: 042
     Dates: start: 20110308, end: 20110308

REACTIONS (12)
  - NAUSEA [None]
  - RESPIRATORY ARREST [None]
  - LOSS OF CONSCIOUSNESS [None]
  - ASPIRATION [None]
  - NEUTROPENIA [None]
  - FEBRILE NEUTROPENIA [None]
  - PYREXIA [None]
  - ENTEROCOLITIS [None]
  - PANCYTOPENIA [None]
  - DECREASED APPETITE [None]
  - DIARRHOEA [None]
  - ALTERED STATE OF CONSCIOUSNESS [None]
